FAERS Safety Report 7124239-X (Version None)
Quarter: 2010Q4

REPORT INFORMATION
  Report Type: 
  Country: None (occurrence: None)
  Receive Date: 20101126
  Receipt Date: 20101118
  Transmission Date: 20110411
  Serious: Yes (Hospitalization)
  Sender: FDA-Public Use
  Company Number: US-AMGEN-USASP2010005738

PATIENT

DRUGS (2)
  1. ENBREL [Suspect]
     Indication: PRODUCT USED FOR UNKNOWN INDICATION
     Dosage: 50 MG, 2 TIMES/WK
     Route: 064
     Dates: start: 19990101, end: 20070101
  2. ENBREL [Suspect]
     Dosage: 50 MG, 2 TIMES/WK
     Route: 064
     Dates: start: 20090101

REACTIONS (1)
  - LARGE FOR DATES BABY [None]
